APPROVED DRUG PRODUCT: CISATRACURIUM BESYLATE
Active Ingredient: CISATRACURIUM BESYLATE
Strength: EQ 2MG BASE/ML
Dosage Form/Route: INJECTABLE;INJECTION
Application: A203238 | Product #001 | TE Code: AP
Applicant: HOSPIRA INC
Approved: Mar 30, 2018 | RLD: No | RS: No | Type: RX